FAERS Safety Report 21439296 (Version 1)
Quarter: 2022Q4

REPORT INFORMATION
  Report Type: Spontaneous
  Country: US (occurrence: None)
  Receive Date: 20221008
  Receipt Date: 20221008
  Transmission Date: 20230113
  Serious: Yes (Hospitalization)
  Sender: FDA-Public Use
  Company Number: None

PATIENT
  Age: 29 Year
  Sex: Male
  Weight: 64.1 kg

DRUGS (4)
  1. CISPLATIN [Suspect]
     Active Substance: CISPLATIN
     Dates: end: 20220927
  2. FILGRASTIM [Suspect]
     Active Substance: FILGRASTIM
     Dates: end: 20221005
  3. IFOSFAMIDE [Suspect]
     Active Substance: IFOSFAMIDE
     Dates: end: 20220927
  4. TAXOL [Suspect]
     Active Substance: PACLITAXEL
     Dates: end: 20220926

REACTIONS (5)
  - Diarrhoea [None]
  - Pyrexia [None]
  - Hypophagia [None]
  - Neutropenic sepsis [None]
  - Clostridium difficile infection [None]

NARRATIVE: CASE EVENT DATE: 20221005
